FAERS Safety Report 5961346-9 (Version None)
Quarter: 2008Q4

REPORT INFORMATION
  Report Type: 
  Country: None (occurrence: None)
  Receive Date: 20081119
  Receipt Date: 20081114
  Transmission Date: 20090506
  Serious: Yes (Death, Hospitalization)
  Sender: FDA-Public Use
  Company Number: 2008SP016618

PATIENT
  Age: 69 Year
  Sex: Male
  Weight: 91.6 kg

DRUGS (2)
  1. TEMODAR [Suspect]
     Indication: GLIOBLASTOMA MULTIFORME
     Dosage: QD; PO
     Route: 048
     Dates: start: 20080603, end: 20080717
  2. DECADRON [Suspect]
     Indication: DRUG USE FOR UNKNOWN INDICATION

REACTIONS (6)
  - CONFUSIONAL STATE [None]
  - DEEP VEIN THROMBOSIS [None]
  - HEADACHE [None]
  - PNEUMONIA [None]
  - PULMONARY THROMBOSIS [None]
  - TUMOUR HAEMORRHAGE [None]
